FAERS Safety Report 8256765-4 (Version None)
Quarter: 2012Q2

REPORT INFORMATION
  Report Type: 
  Country: None (occurrence: None)
  Receive Date: 20120403
  Receipt Date: 20120323
  Transmission Date: 20120825
  Serious: Yes (Other)
  Sender: FDA-Public Use
  Company Number: ES-BRISTOL-MYERS SQUIBB COMPANY-16407397

PATIENT
  Age: 79 Year
  Sex: Female

DRUGS (3)
  1. DASATINIB [Suspect]
     Indication: CHRONIC MYELOID LEUKAEMIA
     Dosage: APR2009-JUL2009,100MG JUL2009-JAN2010,50MG JAN2010-FEB2012,40MG
     Dates: start: 20090401, end: 20120201
  2. PREDNISONE TAB [Concomitant]
  3. FUROSEMIDE [Concomitant]

REACTIONS (2)
  - CARDIOPULMONARY FAILURE [None]
  - PLEURAL EFFUSION [None]
